FAERS Safety Report 8378610-9 (Version None)
Quarter: 2012Q2

REPORT INFORMATION
  Report Type: 
  Country: None (occurrence: None)
  Receive Date: 20120522
  Receipt Date: 20111109
  Transmission Date: 20120825
  Serious: No
  Sender: FDA-Public Use
  Company Number: US-ASTRAZENECA-2011SE67934

PATIENT
  Age: 48 Year
  Sex: Male

DRUGS (10)
  1. HUMIRA [Suspect]
     Indication: ANKYLOSING SPONDYLITIS
     Dosage: 40 MG/ 0.8 ML, ONES IN TWO WEEKS
     Route: 065
     Dates: start: 20091001, end: 20101001
  2. HUMIRA [Suspect]
     Dosage: 40 MG/ 0.8 ML, ONES IN TWO WEEKS
     Route: 065
     Dates: start: 20100801
  3. CYANOCOBALAMIN [Concomitant]
     Indication: VITAMIN B12 DECREASED
  4. PRILOSEC [Suspect]
     Route: 048
  5. CELECOXIB [Concomitant]
  6. LYSINE HYDROCHLORIDE [Concomitant]
     Indication: ORAL HERPES
  7. CHOLECALCIFEROL [Concomitant]
     Indication: RHEUMATOID FACTOR INCREASED
  8. NAPROXEN [Concomitant]
     Indication: PAIN
  9. OMEPRAZOLE [Concomitant]
  10. PROCATEROL HCL [Concomitant]

REACTIONS (8)
  - INJECTION SITE PAIN [None]
  - ANKYLOSING SPONDYLITIS [None]
  - DIZZINESS [None]
  - INJECTION SITE HAEMORRHAGE [None]
  - PARAESTHESIA [None]
  - PLANTAR FASCIITIS [None]
  - ORAL HERPES [None]
  - IRITIS [None]
